FAERS Safety Report 13152453 (Version 4)
Quarter: 2017Q1

REPORT INFORMATION
  Report Type: Report from Study
  Country: None (occurrence: RO)
  Receive Date: 20170125
  Receipt Date: 20170316
  Transmission Date: 20170428
  Serious: Yes (Hospitalization)
  Sender: FDA-Public Use
  Company Number: RO-ABBVIE-16P-135-1738337-00

PATIENT
  Age: 62 Year
  Sex: Male

DRUGS (1)
  1. DUODOPA [Suspect]
     Active Substance: CARBIDOPA\LEVODOPA
     Indication: PARKINSON^S DISEASE
     Dosage: MD=5ML, CR=6,4ML, ED=3,1ML-  DAY PUMP:7/2.4/1, NIGHT PUMP:3/2.2/0.5
     Route: 050
     Dates: start: 20150506, end: 20170307

REACTIONS (10)
  - Psychotic disorder [Recovered/Resolved with Sequelae]
  - Aggression [Recovering/Resolving]
  - Hallucination, auditory [Unknown]
  - Psychotic disorder [Not Recovered/Not Resolved]
  - Delirium [Not Recovered/Not Resolved]
  - Irritability [Unknown]
  - Psychomotor hyperactivity [Unknown]
  - Hallucination, olfactory [Unknown]
  - Hallucination, visual [Unknown]
  - Granuloma [Recovering/Resolving]

NARRATIVE: CASE EVENT DATE: 20160901
